FAERS Safety Report 12511012 (Version 1)
Quarter: 2016Q2

REPORT INFORMATION
  Report Type: Report from Study
  Country: US (occurrence: US)
  Receive Date: 20160629
  Receipt Date: 20160629
  Transmission Date: 20160815
  Serious: Yes (Other)
  Sender: FDA-Public Use
  Company Number: US-MALLINCKRODT-T201602697

PATIENT
  Sex: Female

DRUGS (5)
  1. O2 [Concomitant]
     Dosage: UNKNOWN
     Route: 065
  2. PREDNISONE. [Concomitant]
     Active Substance: PREDNISONE
     Dosage: 30 MG DAILY
     Route: 065
  3. INSULIN [Concomitant]
     Active Substance: INSULIN NOS
     Dosage: PRN
     Route: 065
  4. REPOSITORY CORTICOTROPIN INJECTION [Suspect]
     Active Substance: CORTICOTROPIN
     Indication: SARCOIDOSIS
     Dosage: 40U 2X WEEKLY
     Route: 030
     Dates: start: 20160512
  5. CARDIZEM [Concomitant]
     Active Substance: DILTIAZEM HYDROCHLORIDE
     Dosage: UNKNOWN
     Route: 065
     Dates: start: 20160512

REACTIONS (8)
  - Violence-related symptom [Recovered/Resolved]
  - Feeling abnormal [Recovered/Resolved]
  - Fluid retention [Not Recovered/Not Resolved]
  - Hallucination, auditory [Recovered/Resolved]
  - Mood altered [Recovered/Resolved]
  - Restlessness [Recovered/Resolved]
  - Insomnia [Recovered/Resolved]
  - Atrial fibrillation [Recovering/Resolving]
